FAERS Safety Report 8941634 (Version 1)
Quarter: 2012Q4

REPORT INFORMATION
  Report Type: Report from Study
  Country: FR (occurrence: FR)
  Receive Date: 20121203
  Receipt Date: 20121203
  Transmission Date: 20130627
  Serious: Yes (Other)
  Sender: FDA-Public Use
  Company Number: FR-ROCHE-1014807

PATIENT
  Sex: Female

DRUGS (4)
  1. SOMATROPIN [Suspect]
     Indication: GROWTH RETARDATION
     Route: 058
     Dates: start: 20071201, end: 20110110
  2. FERROSTRANE [Concomitant]
     Dosage: 2 spoons
     Route: 065
     Dates: start: 20110222
  3. CLARITINE [Concomitant]
     Dosage: 1 spoon
     Route: 065
     Dates: start: 20101026
  4. SINGULAIR [Concomitant]
     Route: 065
     Dates: start: 20090728

REACTIONS (2)
  - Intestinal polyp [Unknown]
  - Colon dysplasia [Unknown]
